FAERS Safety Report 5466436-5 (Version None)
Quarter: 2007Q3

REPORT INFORMATION
  Report Type: 
  Country: None (occurrence: None)
  Receive Date: 20070820
  Receipt Date: 20070531
  Transmission Date: 20080115
  Serious: No
  Sender: FDA-Public Use
  Company Number: WAES  0706USA00143

PATIENT
  Age: 59 Year
  Sex: Male

DRUGS (3)
  1. JANUVIA [Suspect]
     Dosage: 100 MG/DAILY/PO
     Route: 048
     Dates: start: 20070510, end: 20070501
  2. VYTORIN [Concomitant]
  3. METFORMIN [Concomitant]

REACTIONS (1)
  - MUSCULOSKELETAL PAIN [None]
